FAERS Safety Report 5793471-X (Version None)
Quarter: 2008Q2

REPORT INFORMATION
  Report Type: 
  Country: None (occurrence: None)
  Receive Date: 20080627
  Receipt Date: 20080618
  Transmission Date: 20081010
  Serious: Yes (Other)
  Sender: FDA-Public Use
  Company Number: SE-JNJFOC-20080604431

PATIENT
  Age: 9 Decade
  Sex: Female

DRUGS (6)
  1. CONCERTA [Suspect]
     Indication: DRUG USE FOR UNKNOWN INDICATION
     Route: 048
  2. VOLTAREN [Concomitant]
  3. ACETAMINOPHEN [Concomitant]
  4. SALURES [Concomitant]
  5. DIGOXIN [Concomitant]
  6. CITALOPRAM HYDROBROMIDE [Concomitant]

REACTIONS (1)
  - DRUG DISPENSING ERROR [None]
